FAERS Safety Report 5919733-0 (Version None)
Quarter: 2008Q4

REPORT INFORMATION
  Report Type: 
  Country: None (occurrence: None)
  Receive Date: 20081015
  Receipt Date: 20081009
  Transmission Date: 20090506
  Serious: No
  Sender: FDA-Public Use
  Company Number: US-B.I. PHARMACEUTICALS,INC./RIDGEFIELD-2008-BP-15675BP

PATIENT
  Age: 82 Year
  Sex: Male

DRUGS (3)
  1. FLOMAX [Suspect]
     Indication: BENIGN PROSTATIC HYPERPLASIA
     Dosage: .4MG
     Route: 048
     Dates: start: 20080228, end: 20080930
  2. COUMADIN [Concomitant]
  3. VERAPIL [Concomitant]

REACTIONS (3)
  - ATAXIA [None]
  - MEDICATION ERROR [None]
  - VERTIGO [None]
